FAERS Safety Report 12130597 (Version 1)
Quarter: 2016Q1

REPORT INFORMATION
  Report Type: Report from Study
  Country: US (occurrence: US)
  Receive Date: 20160301
  Receipt Date: 20160301
  Transmission Date: 20160526
  Serious: Yes (Other)
  Sender: FDA-Public Use
  Company Number: US-ASTRAZENECA-2016SE15784

PATIENT
  Sex: Male

DRUGS (1)
  1. FARXIGA [Suspect]
     Active Substance: DAPAGLIFLOZIN PROPANEDIOL
     Route: 048

REACTIONS (10)
  - Penile swelling [Recovered/Resolved]
  - Blood sodium decreased [Recovered/Resolved]
  - Genital pain [Recovered/Resolved]
  - Pruritus [Recovered/Resolved]
  - Penile haemorrhage [Recovered/Resolved]
  - Eye pruritus [Recovered/Resolved]
  - Vision blurred [Not Recovered/Not Resolved]
  - Kidney infection [Recovered/Resolved]
  - Rectal abscess [Recovered/Resolved]
  - Anal haemorrhage [Recovered/Resolved]
